FAERS Safety Report 8159054-1 (Version None)
Quarter: 2012Q1

REPORT INFORMATION
  Report Type: 
  Country: None (occurrence: None)
  Receive Date: 20120217
  Receipt Date: 20120213
  Transmission Date: 20120608
  Serious: Yes (Other)
  Sender: FDA-Public Use
  Company Number: 1000028377

PATIENT
  Age: 63 Year
  Sex: Female

DRUGS (5)
  1. SPRYCEL (DASATINIB MONOHYDRATE) [Suspect]
     Indication: ACUTE MYELOID LEUKAEMIA
     Dosage: 100 MG (100 MG, 1 IN 1 D)
     Dates: start: 20111222
  2. CYTARABINE [Suspect]
     Indication: ACUTE MYELOID LEUKAEMIA
     Dosage: 200 MG/M2 (200 MG/M2, 1 IN 1 D)
     Dates: start: 20111214
  3. CELEXA [Suspect]
  4. DAUNORUBICIN HCL(DAUNORUBICIN HYDROCHLORIDE) [Suspect]
     Indication: ACUTE MYELOID LEUKAEMIA
     Dosage: 60 MG/M2  (60 MG/M2, 1 IN 1 D)
     Dates: start: 20111214
  5. VORI (VORICONAZOLE) [Suspect]

REACTIONS (4)
  - ELECTROCARDIOGRAM QT PROLONGED [None]
  - HAEMOGLOBIN DECREASED [None]
  - ELECTROLYTE IMBALANCE [None]
  - BLOOD CALCIUM DECREASED [None]
